FAERS Safety Report 9148854 (Version 1)
Quarter: 2013Q1

REPORT INFORMATION
  Report Type: Spontaneous
  Country: US (occurrence: None)
  Receive Date: 20130227
  Receipt Date: 20130227
  Transmission Date: 20140127
  Serious: Yes (Disabling)
  Sender: FDA-Public Use
  Company Number: None

PATIENT
  Age: 55 Year
  Sex: Male
  Weight: 77.11 kg

DRUGS (1)
  1. CYMBALTA [Suspect]
     Indication: BACK PAIN
     Dosage: ONE 60 MG DAILY PO
     Route: 048
     Dates: start: 20120720, end: 20130225

REACTIONS (11)
  - Impulsive behaviour [None]
  - Anxiety [None]
  - Insomnia [None]
  - Amnesia [None]
  - Nausea [None]
  - Muscle rigidity [None]
  - Tinnitus [None]
  - Drug withdrawal syndrome [None]
  - Drug ineffective [None]
  - Loss of employment [None]
  - Economic problem [None]
